FAERS Safety Report 15657402 (Version 1)
Quarter: 2018Q4

REPORT INFORMATION
  Report Type: Report from Study
  Country: US (occurrence: US)
  Receive Date: 20181126
  Receipt Date: 20181126
  Transmission Date: 20190205
  Serious: Yes (Hospitalization)
  Sender: FDA-Public Use
  Company Number: US-SAKK-2018SA317978AA

PATIENT
  Age: 77 Year
  Sex: Female

DRUGS (1)
  1. INSULIN GLARGINE [Suspect]
     Active Substance: INSULIN GLARGINE
     Indication: TYPE 2 DIABETES MELLITUS
     Dosage: 50 U, QD
     Route: 058

REACTIONS (7)
  - Diarrhoea [Recovering/Resolving]
  - Cough [Recovering/Resolving]
  - Amnesia [Recovered/Resolved]
  - Choking [Recovering/Resolving]
  - Nausea [Recovered/Resolved]
  - Malaise [Recovering/Resolving]
  - Vomiting [Recovered/Resolved]
